FAERS Safety Report 7285663-8 (Version None)
Quarter: 2011Q1

REPORT INFORMATION
  Report Type: 
  Country: None (occurrence: None)
  Receive Date: 20110210
  Receipt Date: 20110209
  Transmission Date: 20110831
  Serious: Yes (Other)
  Sender: FDA-Public Use
  Company Number: A0912740A

PATIENT
  Sex: Male

DRUGS (2)
  1. AVANDAMET [Suspect]
     Route: 048
     Dates: start: 20061001, end: 20081101
  2. AVANDIA [Suspect]
     Route: 048
     Dates: start: 19990801, end: 20061001

REACTIONS (4)
  - CARDIAC FAILURE [None]
  - CORONARY ARTERY BYPASS [None]
  - HEART INJURY [None]
  - CARDIAC DISORDER [None]
